FAERS Safety Report 5747046-9 (Version None)
Quarter: 2008Q2

REPORT INFORMATION
  Report Type: 
  Country: None (occurrence: None)
  Receive Date: 20080520
  Receipt Date: 20080513
  Transmission Date: 20081010
  Serious: Yes (Death, Hospitalization, Other)
  Sender: FDA-Public Use
  Company Number: 2008SP006654

PATIENT
  Age: 81 Year
  Sex: Male
  Weight: 82 kg

DRUGS (13)
  1. TEMODAR [Suspect]
     Indication: GLIOBLASTOMA MULTIFORME
     Dosage: QD
     Dates: start: 20080221, end: 20080320
  2. ASPIRIN [Concomitant]
  3. VIITAMIN C [Concomitant]
  4. MULTI-VITAMIN [Concomitant]
  5. PROZAC [Concomitant]
  6. CLONAZEPAM [Concomitant]
  7. SEROQUEL [Concomitant]
  8. ZETIA [Concomitant]
  9. WELLBUTRIN [Concomitant]
  10. DILTIAZEM [Concomitant]
  11. NITROGLYCERIN [Concomitant]
  12. BACTRIM [Concomitant]
  13. DECADRON [Concomitant]

REACTIONS (13)
  - ANAEMIA [None]
  - CHILLS [None]
  - DEHYDRATION [None]
  - DISEASE PROGRESSION [None]
  - FATIGUE [None]
  - HAEMOPTYSIS [None]
  - HYPOALBUMINAEMIA [None]
  - HYPOCALCAEMIA [None]
  - HYPONATRAEMIA [None]
  - LYMPHOPENIA [None]
  - PNEUMONIA [None]
  - PYREXIA [None]
  - TUBERCULOSIS [None]
